FAERS Safety Report 18446396 (Version 1)
Quarter: 2020Q4

REPORT INFORMATION
  Report Type: Spontaneous
  Country: US (occurrence: US)
  Receive Date: 20201030
  Receipt Date: 20201030
  Transmission Date: 20210114
  Serious: No
  Sender: FDA-Public Use
  Company Number: US-VERTEX PHARMACEUTICALS-2020-018430

PATIENT
  Sex: Female

DRUGS (2)
  1. PULMOZYME [Concomitant]
     Active Substance: DORNASE ALFA
  2. TRIKAFTA [Suspect]
     Active Substance: ELEXACAFTOR\IVACAFTOR\TEZACAFTOR
     Indication: CYSTIC FIBROSIS
     Dosage: (200 MG ELEXACAFTOR/100 MG TEZACAFTOR/150 MG IVACAFTOR) AM; (150 MG IVACAFTOR) PM
     Route: 048
     Dates: start: 20200619

REACTIONS (5)
  - Insurance issue [Recovered/Resolved]
  - Cystic fibrosis [Unknown]
  - Product dose omission issue [Recovered/Resolved]
  - Sleep disorder [Unknown]
  - Off label use [Unknown]

NARRATIVE: CASE EVENT DATE: 2020
